FAERS Safety Report 14973023 (Version 1)
Quarter: 2018Q2

REPORT INFORMATION
  Report Type: Spontaneous
  Country: US (occurrence: US)
  Receive Date: 20180514
  Receipt Date: 20180514
  Transmission Date: 20180711
  Serious: Yes (Other)
  Sender: FDA-Public Use
  Company Number: None

PATIENT
  Age: 60 Year
  Sex: Female
  Weight: 110.25 kg

DRUGS (3)
  1. LISINOPRIL HYDRO 20/25 [Concomitant]
  2. LEVOTHYROXINE. [Concomitant]
     Active Substance: LEVOTHYROXINE
  3. LEVOFLOXACIN 750 MG [Suspect]
     Active Substance: LEVOFLOXACIN
     Indication: URINARY TRACT INFECTION
     Dosage: ?          QUANTITY:1 DF DOSAGE FORM;?
     Route: 048
     Dates: start: 20180322, end: 20180330

REACTIONS (5)
  - Pain in extremity [None]
  - Pain [None]
  - Gait disturbance [None]
  - Movement disorder [None]
  - Drug ineffective [None]

NARRATIVE: CASE EVENT DATE: 20180330
